FAERS Safety Report 10406747 (Version 1)
Quarter: 2014Q3

REPORT INFORMATION
  Report Type: Spontaneous
  Country: US (occurrence: US)
  Receive Date: 20140825
  Receipt Date: 20140825
  Transmission Date: 20150326
  Serious: Yes (Hospitalization, Other)
  Sender: FDA-Public Use
  Company Number: US-009507513-1408USA009413

PATIENT
  Sex: Female
  Weight: 82.54 kg

DRUGS (1)
  1. NUVARING [Suspect]
     Active Substance: ETHINYL ESTRADIOL\ETONOGESTREL
     Indication: CONTRACEPTION
     Dosage: UNK
     Route: 067
     Dates: start: 20080501, end: 20080724

REACTIONS (5)
  - Metrorrhagia [Unknown]
  - Deep vein thrombosis [Unknown]
  - Anticoagulation drug level below therapeutic [Unknown]
  - Pulmonary embolism [Unknown]
  - Antiphospholipid antibodies positive [Unknown]

NARRATIVE: CASE EVENT DATE: 20080724
